FAERS Safety Report 10270604 (Version 1)
Quarter: 2014Q3

REPORT INFORMATION
  Report Type: Spontaneous
  Country: US (occurrence: US)
  Receive Date: 20140701
  Receipt Date: 20140701
  Transmission Date: 20150326
  Serious: Yes (Other)
  Sender: FDA-Public Use
  Company Number: US-MERCK-1406USA011831

PATIENT
  Age: 61 Year
  Sex: Female
  Weight: 50.79 kg

DRUGS (1)
  1. PEGINTRON [Suspect]
     Active Substance: PEGINTERFERON ALFA-2B
     Indication: CHRONIC HEPATITIS C
     Dosage: 80 MICROGRAM, QW
     Route: 058
     Dates: start: 20140519, end: 20140602

REACTIONS (16)
  - Muscle tightness [Unknown]
  - Confusional state [Unknown]
  - Decreased appetite [Unknown]
  - Wound [Unknown]
  - Nervous system disorder [Unknown]
  - Cardiac flutter [Unknown]
  - Rash [Unknown]
  - Vomiting [Unknown]
  - Diarrhoea [Unknown]
  - Lung disorder [Unknown]
  - Mental impairment [Unknown]
  - Dyspnoea [Unknown]
  - Adverse event [Unknown]
  - Mental disorder [Unknown]
  - Nasal discomfort [Unknown]
  - Inappropriate schedule of drug administration [Unknown]

NARRATIVE: CASE EVENT DATE: 201405
